FAERS Safety Report 9332612 (Version 3)
Quarter: 2013Q2

REPORT INFORMATION
  Report Type: Spontaneous
  Country: GB (occurrence: None)
  Receive Date: 20130603
  Receipt Date: 20130620
  Transmission Date: 20140414
  Serious: Yes (Other)
  Sender: FDA-Public Use
  Company Number: AMAG201300081

PATIENT
  Sex: Female

DRUGS (2)
  1. RIENSO [Suspect]
     Dosage: ^A FEW ML^, INTRAVENOUS?
     Dates: start: 20130430, end: 20130430
  2. ANTIDEPRESSANTS [Concomitant]

REACTIONS (3)
  - Circulatory collapse [None]
  - Generalised erythema [None]
  - Hyperhidrosis [None]
